FAERS Safety Report 21375579 (Version 2)
Quarter: 2022Q4

REPORT INFORMATION
  Report Type: Spontaneous
  Country: US (occurrence: US)
  Receive Date: 20220926
  Receipt Date: 20221004
  Transmission Date: 20230112
  Serious: No
  Sender: FDA-Public Use
  Company Number: US-PFIZER INC-202201178127

PATIENT
  Age: 65 Year
  Sex: Female
  Weight: 53.52 kg

DRUGS (6)
  1. PAXLOVID [Suspect]
     Active Substance: NIRMATRELVIR\RITONAVIR
     Indication: COVID-19 treatment
     Dosage: UNK
     Dates: start: 20220907, end: 20220911
  2. HUMIRA [Suspect]
     Active Substance: ADALIMUMAB
     Indication: Rheumatoid arthritis
     Dosage: UNK
  3. MOBIC [Concomitant]
     Active Substance: MELOXICAM
     Dosage: 7.5 MG, DAILY
  4. LOVAZA [Concomitant]
     Active Substance: OMEGA-3-ACID ETHYL ESTERS
     Dosage: 1 GM CAPSULE, TWO TIMES DAILY
  5. MISOPROSTOL [Concomitant]
     Active Substance: MISOPROSTOL
     Dosage: 200 UG, 3X/DAY (DAILY)
  6. LATANOPROST [Concomitant]
     Active Substance: LATANOPROST
     Dosage: 1 DF (ONE DROP ONCE DAILY IN EACH EYES)

REACTIONS (1)
  - Therapeutic product effect incomplete [Unknown]
